FAERS Safety Report 4510569-4 (Version None)
Quarter: 2004Q4

REPORT INFORMATION
  Report Type: 
  Country: None (occurrence: None)
  Receive Date: 20041122
  Receipt Date: 20041109
  Transmission Date: 20050328
  Serious: Yes (Other)
  Sender: FDA-Public Use
  Company Number: HQWYE446012NOV04

PATIENT
  Age: 62 Year
  Sex: Male

DRUGS (4)
  1. RAPAMUNE [Suspect]
     Dosage: UNSPECIFIED DOSE
  2. THYMOGLOBULIN [Concomitant]
  3. CORTICOSTEROID NOS (CORTICOSTEROID NOS) [Concomitant]
  4. MYCOPHENOLATE MOFETIL (MYCOPHENOLATE MOFETIL) [Concomitant]

REACTIONS (6)
  - BEZOAR [None]
  - BODY TEMPERATURE INCREASED [None]
  - EXTRAVASATION [None]
  - HEPATITIS CHOLESTATIC [None]
  - POST PROCEDURAL COMPLICATION [None]
  - SMOOTH MUSCLE ANTIBODY POSITIVE [None]
